FAERS Safety Report 9770074 (Version 1)
Quarter: 2013Q4

REPORT INFORMATION
  Report Type: Spontaneous
  Country: US (occurrence: US)
  Receive Date: 20131218
  Receipt Date: 20131218
  Transmission Date: 20140711
  Serious: No
  Sender: FDA-Public Use
  Company Number: US-VERTEX PHARMACEUTICALS INC-AE-2011-000666

PATIENT
  Sex: Female

DRUGS (6)
  1. INCIVEK [Suspect]
     Indication: HEPATITIS C
     Dates: start: 20110705, end: 20110731
  2. PEGASYS [Concomitant]
     Indication: HEPATITIS C
     Route: 058
     Dates: start: 20110705, end: 20110726
  3. RIBAVIRIN [Concomitant]
     Indication: HEPATITIS C
     Dates: start: 20110705, end: 20110731
  4. LEVOTHROXINE [Concomitant]
  5. LUMIGAN [Concomitant]
     Route: 047
  6. FOSAMAX [Concomitant]

REACTIONS (4)
  - Bronchitis [Not Recovered/Not Resolved]
  - Dyspnoea [Not Recovered/Not Resolved]
  - Gingival abscess [Not Recovered/Not Resolved]
  - Rash [Recovered/Resolved]
